FAERS Safety Report 17122425 (Version 2)
Quarter: 2019Q4

REPORT INFORMATION
  Report Type: Spontaneous
  Country: US (occurrence: US)
  Receive Date: 20191206
  Receipt Date: 20191224
  Transmission Date: 20200122
  Serious: No
  Sender: FDA-Public Use
  Company Number: US-VERTEX PHARMACEUTICALS-2019-012098

PATIENT
  Age: 12 Year
  Sex: Female

DRUGS (1)
  1. TRIKAFTA [Suspect]
     Active Substance: ELEXACAFTOR\IVACAFTOR\TEZACAFTOR
     Indication: CYSTIC FIBROSIS
     Dosage: 100 MG ELEXACAFTOR/ 50 MG TEZACAFTOR/ 75 MG IVACAFTOR (2 TAB IN AM); 150MG IVACAFTOR (1 TAB IN PM)
     Route: 048
     Dates: start: 20191114

REACTIONS (3)
  - Gastrointestinal disorder [Not Recovered/Not Resolved]
  - Localised infection [Unknown]
  - Abdominal pain [Unknown]

NARRATIVE: CASE EVENT DATE: 2019
